FAERS Safety Report 20819089 (Version 1)
Quarter: 2022Q2

REPORT INFORMATION
  Report Type: Spontaneous
  Country: US (occurrence: US)
  Receive Date: 20220512
  Receipt Date: 20220512
  Transmission Date: 20220721
  Serious: No
  Sender: FDA-Public Use
  Company Number: US-PFIZER INC-202200597533

PATIENT
  Sex: Male

DRUGS (1)
  1. LORBRENA [Suspect]
     Active Substance: LORLATINIB
     Dosage: UNK
     Dates: start: 2016

REACTIONS (5)
  - Weight increased [Unknown]
  - Mood swings [Unknown]
  - Blood cholesterol abnormal [Unknown]
  - Memory impairment [Unknown]
  - Distractibility [Unknown]
